FAERS Safety Report 4874732-5 (Version None)
Quarter: 2006Q1

REPORT INFORMATION
  Report Type: 
  Country: None (occurrence: None)
  Receive Date: 20060105
  Receipt Date: 20060105
  Transmission Date: 20060701
  Serious: Yes (Hospitalization)
  Sender: FDA-Public Use
  Company Number: None

PATIENT
  Weight: 122 kg

DRUGS (1)
  1. FACTOR VII [Suspect]
     Indication: GASTROINTESTINAL HAEMORRHAGE
     Dosage: 90 UNITS/KG ONCE IV
     Route: 042

REACTIONS (1)
  - CARDIAC ENZYMES INCREASED [None]
